FAERS Safety Report 21138817 (Version 1)
Quarter: 2022Q3

REPORT INFORMATION
  Report Type: Spontaneous
  Country: EG (occurrence: EG)
  Receive Date: 20220727
  Receipt Date: 20220727
  Transmission Date: 20221027
  Serious: Yes (Death, Life-Threatening, Hospitalization, Other)
  Sender: FDA-Public Use
  Company Number: EG-NOVARTISPH-NVSC2022EG169732

PATIENT
  Age: 43 Year
  Sex: Male

DRUGS (9)
  1. FLUMAZENIL [Suspect]
     Active Substance: FLUMAZENIL
     Indication: Overdose
     Dosage: 0.5 MG, UNKNOWN (5 AMPOULES OF FLUMAZENIL)
     Route: 042
  2. DIAZEPAM [Suspect]
     Active Substance: DIAZEPAM
     Indication: Sleep disorder
     Dosage: UNK (PATIENT UNINTENTIONALLY TOOK 10 TABLETS OF DIAZEPAM 10 MG OVER A PERIOD OF 24 HOURS)
     Route: 065
  3. METHYL ALCOHOL [Suspect]
     Active Substance: METHYL ALCOHOL
     Indication: Nephrolithiasis
     Dosage: UNK (ONE GLASS OF DENATURED ETHANOL CONTAINING METHANOL THAT HE MIXED WITH A CAN OF SODA)
     Route: 048
  4. LIRAGLUTIDE [Suspect]
     Active Substance: LIRAGLUTIDE
     Indication: Weight decreased
     Dosage: UNK (ONE INJECTION 2 DAYS BEFORE THE HOSPITAL ADMISSION)
     Route: 058
  5. SALINE [Concomitant]
     Active Substance: SODIUM CHLORIDE
     Indication: Resuscitation
     Dosage: UNK (1000 ML NORMAL SALINE 0.9 PERCENTAGE INFUSED OVER 30 MINUTE)
     Route: 042
  6. DEXTROSE [Concomitant]
     Active Substance: DEXTROSE
     Indication: Product used for unknown indication
     Dosage: UNK (100 ML DEXTROSE 25 PERCENTAGE WAS GIVEN IV)
     Route: 042
  7. SODIUM BICARBONATE [Concomitant]
     Active Substance: SODIUM BICARBONATE
     Indication: Product used for unknown indication
     Dosage: 150 MEQ, IV INFUSION OVER ONE HOUR
     Route: 042
  8. NOREPINEPHRINE\NOREPINEPHRINE BITARTRATE [Concomitant]
     Active Substance: NOREPINEPHRINE\NOREPINEPHRINE BITARTRATE
     Indication: Product used for unknown indication
     Dosage: 3,3 MICRO/KG/MIN
     Route: 065
  9. EPINEPHRINE [Concomitant]
     Active Substance: EPINEPHRINE
     Indication: Product used for unknown indication
     Dosage: 2 MICRO/KG/MIN
     Route: 065

REACTIONS (6)
  - Death [Fatal]
  - Ischaemia [Unknown]
  - Sinus tachycardia [Unknown]
  - Cardiac arrest [Unknown]
  - Drug ineffective [Unknown]
  - Renal impairment [Unknown]
